FAERS Safety Report 6599781-0 (Version None)
Quarter: 2010Q1

REPORT INFORMATION
  Report Type: 
  Country: None (occurrence: None)
  Receive Date: 20100224
  Receipt Date: 20100222
  Transmission Date: 20100710
  Serious: Yes (Hospitalization)
  Sender: FDA-Public Use
  Company Number: US-GILEAD-2010-0026942

PATIENT
  Sex: Female
  Weight: 110.32 kg

DRUGS (10)
  1. LETAIRIS [Suspect]
     Indication: PULMONARY HYPERTENSION
     Dates: start: 20090921
  2. LASIX [Suspect]
  3. LISINOPRIL AND HYDROCHLOROTHIAZIDE [Suspect]
  4. TYVASO [Concomitant]
     Indication: PULMONARY HYPERTENSION
     Dates: start: 20090112
  5. REVATIO [Concomitant]
     Indication: PULMONARY HYPERTENSION
     Dates: start: 20090915
  6. DIGOXIN [Concomitant]
  7. ASPIRIN [Concomitant]
  8. ALDACTONE [Concomitant]
  9. COUMADIN [Concomitant]
     Indication: FACTOR V DEFICIENCY
  10. POTASSIUM CHLORIDE [Concomitant]

REACTIONS (3)
  - DEHYDRATION [None]
  - PULMONARY ARTERIAL HYPERTENSION [None]
  - SYNCOPE [None]
